FAERS Safety Report 25076398 (Version 1)
Quarter: 2025Q1

REPORT INFORMATION
  Report Type: Spontaneous
  Country: CN (occurrence: CN)
  Receive Date: 20250313
  Receipt Date: 20250313
  Transmission Date: 20250409
  Serious: Yes (Other)
  Sender: PFIZER
  Company Number: CN-PFIZER INC-PV202500029807

PATIENT
  Age: 39 Year
  Sex: Female
  Weight: 62 kg

DRUGS (1)
  1. METHOTREXATE SODIUM [Suspect]
     Active Substance: METHOTREXATE SODIUM
     Indication: Chemotherapy
     Dosage: 24 MG, 1X/DAY
     Route: 030
     Dates: start: 20250214, end: 20250218

REACTIONS (4)
  - Rash [Recovered/Resolved]
  - Pigmentation disorder [Recovering/Resolving]
  - Acne [Recovered/Resolved]
  - Ephelides [Recovered/Resolved]

NARRATIVE: CASE EVENT DATE: 20250218
